FAERS Safety Report 8261477-7 (Version None)
Quarter: 2012Q2

REPORT INFORMATION
  Report Type: 
  Country: None (occurrence: None)
  Receive Date: 20120405
  Receipt Date: 20120403
  Transmission Date: 20120825
  Serious: Yes (Hospitalization)
  Sender: FDA-Public Use
  Company Number: JP-PFIZER INC-2012084425

PATIENT
  Age: 79 Year
  Sex: Female

DRUGS (1)
  1. RHEUMATREX [Suspect]
     Dosage: 8 MG, WEEKLY
     Route: 048

REACTIONS (1)
  - FRACTURE [None]
